FAERS Safety Report 8904349 (Version 1)
Quarter: 2012Q4

REPORT INFORMATION
  Report Type: Report from Study
  Country: US (occurrence: US)
  Receive Date: 20121112
  Receipt Date: 20121112
  Transmission Date: 20130627
  Serious: Yes (Other)
  Sender: FDA-Public Use
  Company Number: US-ABBOTT-12P-163-1004388-00

PATIENT
  Age: 49 Year
  Sex: Female

DRUGS (1)
  1. HUMIRA [Suspect]
     Indication: RHEUMATOID ARTHRITIS
     Dates: start: 201210

REACTIONS (5)
  - Visual impairment [Unknown]
  - Uveitis [Unknown]
  - Glaucoma [Unknown]
  - Cataract [Unknown]
  - Road traffic accident [Unknown]
